FAERS Safety Report 13003698 (Version 1)
Quarter: 2016Q4

REPORT INFORMATION
  Report Type: Spontaneous
  Country: US (occurrence: US)
  Receive Date: 20161206
  Receipt Date: 20161206
  Transmission Date: 20170207
  Serious: Yes (Other)
  Sender: FDA-Public Use
  Company Number: US-NOVOPROD-521111

PATIENT
  Sex: Female

DRUGS (1)
  1. TRESIBA FLEXTOUCH U200 [Suspect]
     Active Substance: INSULIN DEGLUDEC
     Indication: PRODUCT USED FOR UNKNOWN INDICATION
     Dosage: UNKNOWN
     Route: 058

REACTIONS (7)
  - Pancreatitis [Unknown]
  - Swelling [Unknown]
  - Diarrhoea [Unknown]
  - Urticaria [Unknown]
  - Arthralgia [Unknown]
  - Feeling abnormal [Unknown]
  - Vomiting [Unknown]
